FAERS Safety Report 11822084 (Version 4)
Quarter: 2016Q3

REPORT INFORMATION
  Report Type: Spontaneous
  Country: US (occurrence: US)
  Receive Date: 20151210
  Receipt Date: 20160725
  Transmission Date: 20161109
  Serious: No
  Sender: FDA-Public Use
  Company Number: US-JNJFOC-20150723059

PATIENT
  Age: 77 Year
  Sex: Female
  Weight: 64 kg

DRUGS (12)
  1. ONDANSETRON [Concomitant]
     Active Substance: ONDANSETRON
     Dosage: 4MG, PRN
     Route: 048
     Dates: start: 20130708
  2. IMBRUVICA [Suspect]
     Active Substance: IBRUTINIB
     Indication: CHRONIC LYMPHOCYTIC LEUKAEMIA
     Route: 048
     Dates: start: 201510
  3. ALEVE [Concomitant]
     Active Substance: NAPROXEN SODIUM
     Indication: BACK PAIN
     Dosage: 220MG, PRN
  4. CYCLOBENZAPRINE [Concomitant]
     Active Substance: CYCLOBENZAPRINE
     Dosage: 10MG, PRN
     Route: 048
  5. TROLAMINE SALICYLATE. [Concomitant]
     Active Substance: TROLAMINE SALICYLATE
  6. OXYBUTYNIN CHLORIDE. [Concomitant]
     Active Substance: OXYBUTYNIN CHLORIDE
     Route: 048
  7. HERBAL NOS [Concomitant]
     Active Substance: HERBALS
  8. IMBRUVICA [Suspect]
     Active Substance: IBRUTINIB
     Indication: CHRONIC LYMPHOCYTIC LEUKAEMIA
     Route: 048
     Dates: start: 20150601, end: 201510
  9. PRAMIPEXOLE DIHYDROCHLORIDE. [Concomitant]
     Active Substance: PRAMIPEXOLE DIHYDROCHLORIDE
     Indication: RESTLESS LEGS SYNDROME
     Dates: start: 20131016
  10. TAURINE [Concomitant]
     Active Substance: TAURINE
  11. HYDROCODONE [Concomitant]
     Active Substance: HYDROCODONE
     Indication: BACK PAIN
     Dosage: 10/325 PRN
     Route: 048
  12. LISINOPRIL. [Concomitant]
     Active Substance: LISINOPRIL
     Indication: HYPERTENSION
     Route: 048
     Dates: start: 20120618

REACTIONS (15)
  - Dizziness [Not Recovered/Not Resolved]
  - Fatigue [Unknown]
  - Dysphagia [Unknown]
  - Contusion [Unknown]
  - Dry mouth [Not Recovered/Not Resolved]
  - Blood count abnormal [Recovered/Resolved]
  - Nausea [Recovered/Resolved]
  - Chest wall haematoma [Unknown]
  - Bone pain [Not Recovered/Not Resolved]
  - Cataract [Not Recovered/Not Resolved]
  - Diarrhoea [Unknown]
  - Anaemia [Unknown]
  - Pain [Not Recovered/Not Resolved]
  - White blood cell count decreased [Not Recovered/Not Resolved]
  - Urinary tract infection [Not Recovered/Not Resolved]

NARRATIVE: CASE EVENT DATE: 2015
